FAERS Safety Report 4456532-3 (Version None)
Quarter: 2004Q3

REPORT INFORMATION
  Report Type: 
  Country: None (occurrence: None)
  Receive Date: 20040920
  Receipt Date: 20040807
  Transmission Date: 20050211
  Serious: Yes (Life-Threatening)
  Sender: FDA-Public Use
  Company Number: URSO-2004-016

PATIENT
  Age: 73 Year
  Sex: Female

DRUGS (3)
  1. URSO [Suspect]
     Indication: CHRONIC HEPATITIS
     Dosage: 600 MG PO
     Route: 048
     Dates: end: 20040731
  2. SHOUSAIKOTOU [Suspect]
     Indication: CHRONIC HEPATITIS
     Dosage: 7.5G PO
     Route: 048
     Dates: end: 20040731
  3. ROCEPHIN [Suspect]
     Dosage: 2G IV
     Route: 042
     Dates: end: 20040731

REACTIONS (1)
  - INTERSTITIAL LUNG DISEASE [None]
